FAERS Safety Report 5017994-6 (Version None)
Quarter: 2006Q2

REPORT INFORMATION
  Report Type: 
  Country: None (occurrence: None)
  Receive Date: 20060530
  Receipt Date: 20050315
  Transmission Date: 20061013
  Serious: Yes (Hospitalization)
  Sender: FDA-Public Use
  Company Number: 2005045529

PATIENT
  Age: 83 Year
  Sex: Male
  Weight: 80 kg

DRUGS (4)
  1. LYRICA [Suspect]
     Indication: PHANTOM PAIN
     Dosage: 225 MG (75 MG), ORAL
     Route: 048
     Dates: start: 20050218, end: 20050225
  2. DIPYRONE TAB [Concomitant]
  3. ALL OTHER THERAPEUTIC PRODUCTS [Concomitant]
  4. ACETYLSALICYLIC ACID SRT [Concomitant]

REACTIONS (5)
  - ASTHENIA [None]
  - BLOOD CREATINE INCREASED [None]
  - CONFUSIONAL STATE [None]
  - DIZZINESS [None]
  - MYOCLONUS [None]
